FAERS Safety Report 5538268-0 (Version None)
Quarter: 2007Q4

REPORT INFORMATION
  Report Type: 
  Country: None (occurrence: None)
  Receive Date: 20071204
  Receipt Date: 20071119
  Transmission Date: 20080405
  Serious: Yes (Disabling)
  Sender: FDA-Public Use
  Company Number: ES-1164504

PATIENT
  Age: 82 Year
  Sex: Male

DRUGS (5)
  1. COLIRCUSI GENTAMICINA [Suspect]
     Dosage: OPHTHALMIC
     Route: 047
     Dates: start: 20071006, end: 20071008
  2. DUOTRAV (DUOTRAV) SOLUTION [Suspect]
     Indication: GLAUCOMA
     Dosage: 1 GTT QD, OPHTHALMIC
     Route: 047
     Dates: start: 20071006, end: 20071008
  3. AZOPT [Suspect]
     Dosage: OPHTHALMIC
     Route: 047
     Dates: end: 20071001
  4. ENALAPRIL MALEATE [Concomitant]
  5. LIPOSCLER                     (LOVASTATIN) [Concomitant]

REACTIONS (12)
  - ANTERIOR CHAMBER CELL [None]
  - BLINDNESS [None]
  - CONJUNCTIVITIS [None]
  - CORNEAL OEDEMA [None]
  - DRUG INTERACTION [None]
  - EYE IRRITATION [None]
  - HYPERSENSITIVITY [None]
  - IRIDOCYCLITIS [None]
  - KERATITIS [None]
  - OCULAR HYPERAEMIA [None]
  - PUNCTATE KERATITIS [None]
  - VISUAL FIELD DEFECT [None]
